FAERS Safety Report 9650201 (Version 2)
Quarter: 2013Q4

REPORT INFORMATION
  Report Type: Spontaneous
  Country: US (occurrence: US)
  Receive Date: 20131028
  Receipt Date: 20131028
  Transmission Date: 20140711
  Serious: No
  Sender: FDA-Public Use
  Company Number: US-PURDUE-USA-2012-0097242

PATIENT
  Sex: Male

DRUGS (15)
  1. OXYCONTIN (NDA 22-272) [Suspect]
     Indication: PRODUCT USED FOR UNKNOWN INDICATION
     Dosage: 80 MG, Q12H
     Route: 048
     Dates: start: 20120405
  2. ALPRAZOLAM [Concomitant]
     Indication: PRODUCT USED FOR UNKNOWN INDICATION
     Dosage: .5 MG, 1 TO 2 TABLETS TID
     Route: 048
  3. MAG OXIDE [Concomitant]
     Indication: PRODUCT USED FOR UNKNOWN INDICATION
     Dosage: 400 MG, QD PRN
     Route: 065
  4. AUGMENTIN                          /00756801/ [Concomitant]
     Indication: PRODUCT USED FOR UNKNOWN INDICATION
     Dosage: 500 UNK, QD PRN
     Route: 065
     Dates: start: 20121022, end: 20121219
  5. HYDROCODONE HYDROCHLORIDE W/PARACETAMOL [Concomitant]
     Indication: PAIN
     Dosage: 5-500, ONE TO TWO TABLETS, Q6H
     Route: 048
     Dates: start: 20121221
  6. GABAPENTIN [Concomitant]
     Indication: PRODUCT USED FOR UNKNOWN INDICATION
     Dosage: 100 MG, 2, TID
     Route: 065
  7. MIRTAZAPINE [Concomitant]
     Indication: PRODUCT USED FOR UNKNOWN INDICATION
     Dosage: 45 MG, HS
     Route: 065
  8. PYRIDOSTIGMINE [Concomitant]
     Indication: PRODUCT USED FOR UNKNOWN INDICATION
     Dosage: 60 MG, QD PRN
     Route: 065
  9. METHOCARBAMOL [Concomitant]
     Indication: PRODUCT USED FOR UNKNOWN INDICATION
     Dosage: 750 UNK, QID
     Route: 065
  10. NEPHPLEX RX [Concomitant]
     Indication: PRODUCT USED FOR UNKNOWN INDICATION
     Dosage: 1 UNK, QD PRN
     Route: 065
  11. ONDANSETRON [Concomitant]
     Indication: NAUSEA
     Dosage: 4 MG, TID PRN
     Route: 065
  12. MIDODRINE [Concomitant]
     Indication: PRODUCT USED FOR UNKNOWN INDICATION
     Dosage: 20 MG, TID
     Route: 065
  13. HYDROMORPHONE HCL (SIMILAR TO 19-892) [Concomitant]
     Indication: PRODUCT USED FOR UNKNOWN INDICATION
     Dosage: 8 MG, TID
     Route: 048
  14. DIPHENOXYLATE W/ATROPINE SULFATE [Concomitant]
     Indication: PRODUCT USED FOR UNKNOWN INDICATION
     Dosage: 1-2, QID PRN
     Route: 065
  15. FLUDROCORTISONE [Concomitant]
     Indication: PRODUCT USED FOR UNKNOWN INDICATION
     Dosage: .02 TABLET, BID
     Route: 048

REACTIONS (1)
  - Medication residue present [Unknown]
